FAERS Safety Report 7210362-8 (Version None)
Quarter: 2011Q1

REPORT INFORMATION
  Report Type: 
  Country: None (occurrence: None)
  Receive Date: 20110105
  Receipt Date: 20101222
  Transmission Date: 20110831
  Serious: Yes (Other)
  Sender: FDA-Public Use
  Company Number: PHHY2010AR68760

PATIENT
  Sex: Male

DRUGS (8)
  1. CLOZAPINE [Suspect]
     Dosage: 175 MG DAILY
  2. QUETIAPINE [Concomitant]
  3. CLOZAPINE [Suspect]
     Dosage: 275 MG DAILY
  4. OLANZAPINE [Concomitant]
  5. CLOZAPINE [Suspect]
     Indication: PSYCHOTIC DISORDER
     Dosage: 125 MG, QD
     Dates: start: 20100909
  6. CHLORPROMAZINE [Suspect]
     Dosage: UNK
  7. VALPROIC ACID [Concomitant]
  8. LEVOMEPROMAZINE [Concomitant]
     Dosage: UNK

REACTIONS (9)
  - SYNCOPE [None]
  - SALIVARY HYPERSECRETION [None]
  - CONSTIPATION [None]
  - PARAESTHESIA [None]
  - PSYCHOMOTOR HYPERACTIVITY [None]
  - PSYCHIATRIC DECOMPENSATION [None]
  - AGGRESSION [None]
  - POSTURE ABNORMAL [None]
  - DYSARTHRIA [None]
